FAERS Safety Report 7808758-6 (Version None)
Quarter: 2011Q4

REPORT INFORMATION
  Report Type: 
  Country: None (occurrence: None)
  Receive Date: 20111007
  Receipt Date: 20110927
  Transmission Date: 20120403
  Serious: Yes (Other)
  Sender: FDA-Public Use
  Company Number: 2011GW000518

PATIENT
  Age: 61 Year
  Sex: Male

DRUGS (2)
  1. IMIQUIMOD [Concomitant]
  2. IMIQUIMOD [Suspect]
     Indication: ACTINIC KERATOSIS
     Dosage: TOP
     Route: 061

REACTIONS (8)
  - INFLUENZA LIKE ILLNESS [None]
  - INFLAMMATION [None]
  - MALAISE [None]
  - ARRHYTHMIA [None]
  - SWELLING [None]
  - TRIGEMINAL NEURALGIA [None]
  - HEADACHE [None]
  - SCAB [None]
